FAERS Safety Report 15393516 (Version 1)
Quarter: 2018Q3

REPORT INFORMATION
  Report Type: Spontaneous
  Country: US (occurrence: US)
  Receive Date: 20180917
  Receipt Date: 20180917
  Transmission Date: 20181010
  Serious: No
  Sender: FDA-Public Use
  Company Number: US-MERZ NORTH AMERICA, INC.-18MRZ-00477

PATIENT
  Age: 53 Year
  Sex: Female

DRUGS (1)
  1. XEOMIN [Suspect]
     Active Substance: INCOBOTULINUMTOXINA
     Indication: BLEPHAROSPASM
     Dosage: 50 UNITS
     Route: 030
     Dates: start: 20180301, end: 20180601

REACTIONS (1)
  - Drug ineffective [Unknown]
